FAERS Safety Report 23273798 (Version 1)
Quarter: 2023Q4

REPORT INFORMATION
  Report Type: Spontaneous
  Country: CH (occurrence: CH)
  Receive Date: 20231207
  Receipt Date: 20231207
  Transmission Date: 20240109
  Serious: Yes (Death, Hospitalization, Other)
  Sender: FDA-Public Use
  Company Number: None

PATIENT
  Age: 78 Year
  Sex: Male

DRUGS (3)
  1. NIVOLUMAB [Suspect]
     Active Substance: NIVOLUMAB
     Indication: Malignant melanoma
     Dosage: CYCLICAL 4 CYCLES.
     Dates: start: 20211011, end: 20211216
  2. NIVOLUMAB [Suspect]
     Active Substance: NIVOLUMAB
     Dosage: CYCLICAL, 2 CYCLES
     Dates: start: 20220113, end: 20220126
  3. IPILIMUMAB [Suspect]
     Active Substance: IPILIMUMAB
     Indication: Malignant melanoma
     Dosage: CYCLICAL
     Dates: start: 20211011, end: 20211216

REACTIONS (9)
  - Infection [Fatal]
  - Pulmonary sepsis [Recovered/Resolved]
  - Hypophysitis [Recovered/Resolved]
  - Adrenal insufficiency [Recovered/Resolved]
  - Pneumonia [Recovered/Resolved]
  - Myelopathy [Unknown]
  - Pulmonary embolism [Unknown]
  - Injury [Unknown]
  - Cervical spinal stenosis [Unknown]

NARRATIVE: CASE EVENT DATE: 20220201
